FAERS Safety Report 17803043 (Version 1)
Quarter: 2020Q2

REPORT INFORMATION
  Report Type: Spontaneous
  Country: US (occurrence: US)
  Receive Date: 20200519
  Receipt Date: 20200519
  Transmission Date: 20200714
  Serious: No
  Sender: FDA-Public Use
  Company Number: US-ALVOGEN-2020-ALVOGEN-108037

PATIENT
  Age: 47 Year
  Sex: Female

DRUGS (1)
  1. GRALISE [Suspect]
     Active Substance: GABAPENTIN
     Indication: MIGRAINE
     Dosage: ONE TABLET BY MOUTH ONCE DAILY WITH EVENING MEAL.
     Route: 048

REACTIONS (2)
  - Product use in unapproved indication [Unknown]
  - Product dose omission [Unknown]
